FAERS Safety Report 18271968 (Version 1)
Quarter: 2020Q3

REPORT INFORMATION
  Report Type: Spontaneous
  Country: US (occurrence: US)
  Receive Date: 20200915
  Receipt Date: 20200915
  Transmission Date: 20201103
  Serious: No
  Sender: FDA-Public Use
  Company Number: None

PATIENT
  Age: 68 Year
  Sex: Female
  Weight: 80.55 kg

DRUGS (14)
  1. OXYCONTIN [Concomitant]
     Active Substance: OXYCODONE HYDROCHLORIDE
  2. PREDNISONE. [Concomitant]
     Active Substance: PREDNISONE
  3. AMBIEN [Concomitant]
     Active Substance: ZOLPIDEM TARTRATE
  4. HERCEPTIN [Concomitant]
     Active Substance: TRASTUZUMAB
  5. VITAMIN K2 [Concomitant]
     Active Substance: MENAQUINONE 6
  6. OXYBUTININ [Concomitant]
     Active Substance: OXYBUTYNIN
  7. HUMALOG [Concomitant]
     Active Substance: INSULIN LISPRO
  8. ATIVAN [Concomitant]
     Active Substance: LORAZEPAM
  9. TYLENOL WITH COIDEINE #3 [Concomitant]
  10. COZAAR [Concomitant]
     Active Substance: LOSARTAN POTASSIUM
  11. NEURONTIN [Concomitant]
     Active Substance: GABAPENTIN
  12. VISTARIL [Concomitant]
     Active Substance: HYDROXYZINE PAMOATE
  13. CAPECITABINE. [Suspect]
     Active Substance: CAPECITABINE
     Indication: BREAST CANCER
     Route: 048
     Dates: start: 20200825
  14. TRAMADOL. [Concomitant]
     Active Substance: TRAMADOL

REACTIONS (3)
  - Nausea [None]
  - Epistaxis [None]
  - Condition aggravated [None]

NARRATIVE: CASE EVENT DATE: 20200825
